FAERS Safety Report 5053527-6 (Version None)
Quarter: 2006Q2

REPORT INFORMATION
  Report Type: 
  Country: None (occurrence: None)
  Receive Date: 20060614
  Receipt Date: 20060515
  Transmission Date: 20061013
  Serious: Yes (Other)
  Sender: FDA-Public Use
  Company Number: 448266

PATIENT
  Age: 69 Year
  Weight: 54.4 kg

DRUGS (1)
  1. BONIVA [Suspect]
     Indication: DRUG USE FOR UNKNOWN INDICATION
     Dosage: ORAL
     Route: 048
     Dates: start: 20060115, end: 20060115

REACTIONS (2)
  - ABDOMINAL DISTENSION [None]
  - FLATULENCE [None]
